FAERS Safety Report 15157274 (Version 1)
Quarter: 2018Q3

REPORT INFORMATION
  Report Type: Report from Study
  Country: US (occurrence: US)
  Receive Date: 20180718
  Receipt Date: 20180718
  Transmission Date: 20181010
  Serious: Yes (Other)
  Sender: FDA-Public Use
  Company Number: US-ROCHE-1973265

PATIENT
  Sex: Female

DRUGS (6)
  1. TRASTUZUMAB. [Suspect]
     Active Substance: TRASTUZUMAB
     Indication: METASTASES TO CENTRAL NERVOUS SYSTEM
  2. EVEROLIMUS. [Suspect]
     Active Substance: EVEROLIMUS
     Indication: METASTASES TO CENTRAL NERVOUS SYSTEM
  3. VINORELBINE [Suspect]
     Active Substance: VINORELBINE\VINORELBINE TARTRATE
     Indication: METASTASES TO CENTRAL NERVOUS SYSTEM
  4. TRASTUZUMAB. [Suspect]
     Active Substance: TRASTUZUMAB
     Indication: HER-2 POSITIVE BREAST CANCER
     Dosage: DAYS 1, 15 ON A 21 DAY CYCLE
     Route: 042
  5. EVEROLIMUS. [Suspect]
     Active Substance: EVEROLIMUS
     Indication: HER-2 POSITIVE BREAST CANCER
     Route: 048
  6. VINORELBINE [Suspect]
     Active Substance: VINORELBINE\VINORELBINE TARTRATE
     Indication: HER-2 POSITIVE BREAST CANCER
     Dosage: DAY 1 AND 8 OF 21 DAY CYCLE
     Route: 042

REACTIONS (13)
  - Blood alkaline phosphatase increased [Unknown]
  - Diarrhoea [Unknown]
  - Hypokalaemia [Unknown]
  - Anaemia [Unknown]
  - Neutropenia [Unknown]
  - Aspartate aminotransferase increased [Unknown]
  - Pneumonitis [Unknown]
  - Sepsis [Unknown]
  - Decreased appetite [Unknown]
  - Febrile neutropenia [Unknown]
  - Leukopenia [Unknown]
  - Lymphocyte count decreased [Unknown]
  - Stomatitis [Unknown]
